FAERS Safety Report 14425757 (Version 1)
Quarter: 2018Q1

REPORT INFORMATION
  Report Type: Spontaneous
  Country: US (occurrence: US)
  Receive Date: 20180122
  Receipt Date: 20180122
  Transmission Date: 20180509
  Serious: Yes (Other)
  Sender: FDA-Public Use
  Company Number: None

PATIENT
  Sex: Female
  Weight: 81.9 kg

DRUGS (9)
  1. AZITHROMYCIN ANHYDROUS. [Suspect]
     Active Substance: AZITHROMYCIN ANHYDROUS
     Indication: BRONCHITIS
     Dosage: QUANTITY:6 TABLET(S);OTHER FREQUENCY:2 1ST DAY THEN 1/D;?
     Route: 048
     Dates: start: 20180115, end: 20180119
  2. PROTONIX [Concomitant]
     Active Substance: PANTOPRAZOLE SODIUM
  3. VITAMIN D [Concomitant]
     Active Substance: CHOLECALCIFEROL
  4. LITHIUM. [Concomitant]
     Active Substance: LITHIUM
  5. FISH OIL [Concomitant]
     Active Substance: FISH OIL
  6. AZITHROMYCIN ANHYDROUS. [Suspect]
     Active Substance: AZITHROMYCIN ANHYDROUS
     Indication: SINUSITIS
     Dosage: QUANTITY:6 TABLET(S);OTHER FREQUENCY:2 1ST DAY THEN 1/D;?
     Route: 048
     Dates: start: 20180115, end: 20180119
  7. WELLBUTRIN [Concomitant]
     Active Substance: BUPROPION HYDROCHLORIDE
  8. IBUPROFEN. [Concomitant]
     Active Substance: IBUPROFEN
  9. MAGNESIUM [Concomitant]
     Active Substance: MAGNESIUM

REACTIONS (4)
  - Major depression [None]
  - Emotional disorder [None]
  - Suicidal ideation [None]
  - Paranoia [None]

NARRATIVE: CASE EVENT DATE: 20180119
